FAERS Safety Report 11456575 (Version 1)
Quarter: 2015Q3

REPORT INFORMATION
  Report Type: Report from Study
  Country: US (occurrence: US)
  Receive Date: 20150903
  Receipt Date: 20150903
  Transmission Date: 20151125
  Serious: Yes (Hospitalization, Other)
  Sender: FDA-Public Use
  Company Number: US-EXELIXIS-CABO-15005646

PATIENT
  Sex: Female

DRUGS (2)
  1. COMETRIQ [Suspect]
     Active Substance: CABOZANTINIB S-MALATE
     Indication: THYROID CANCER
     Dosage: 60 MG, QD
     Route: 048
     Dates: start: 201410, end: 20141028
  2. COMETRIQ [Suspect]
     Active Substance: CABOZANTINIB S-MALATE
     Dosage: 20 MG, QD
     Route: 048
     Dates: start: 20150503, end: 20150826

REACTIONS (7)
  - Pulmonary cavitation [Unknown]
  - Dyspnoea [Unknown]
  - Chest pain [Unknown]
  - Hypokalaemia [Unknown]
  - Aspergillus test positive [Unknown]
  - Klebsiella test positive [Unknown]
  - Hypoxia [Unknown]
